FAERS Safety Report 5889975-1 (Version None)
Quarter: 2008Q3

REPORT INFORMATION
  Report Type: 
  Country: None (occurrence: None)
  Receive Date: 20080919
  Receipt Date: 20080908
  Transmission Date: 20090109
  Serious: Yes (Other)
  Sender: FDA-Public Use
  Company Number: JP-PFIZER INC-2008078444

PATIENT
  Age: 67 Year
  Sex: Female

DRUGS (8)
  1. MIGLITOL TABLET [Suspect]
     Indication: DIABETES MELLITUS
     Dosage: DAILY DOSE:150MG
     Route: 048
     Dates: start: 20080416, end: 20080905
  2. LASIX [Concomitant]
     Dosage: DAILY DOSE:20MG
     Route: 048
  3. VALSARTAN [Concomitant]
     Dosage: DAILY DOSE:40MG
     Route: 048
  4. LIVALO [Concomitant]
     Dosage: DAILY DOSE:1MG
     Route: 048
  5. CYANOCOBALAMIN [Concomitant]
     Dosage: DAILY DOSE:1.5MG
     Route: 048
  6. DICLOFENAC SODIUM [Concomitant]
     Dosage: DAILY DOSE:37.5MG
     Route: 048
  7. SELBEX [Concomitant]
     Dosage: DAILY DOSE:50MG
     Route: 048
  8. ASPARA K [Concomitant]
     Dosage: DAILY DOSE:600MG
     Route: 048

REACTIONS (2)
  - ALANINE AMINOTRANSFERASE INCREASED [None]
  - ASPARTATE AMINOTRANSFERASE INCREASED [None]
